FAERS Safety Report 7942885-8 (Version None)
Quarter: 2011Q4

REPORT INFORMATION
  Report Type: 
  Country: None (occurrence: None)
  Receive Date: 20111128
  Receipt Date: 20111118
  Transmission Date: 20120403
  Serious: Yes (Other)
  Sender: FDA-Public Use
  Company Number: US-MERCK-1110USA03917

PATIENT
  Age: 50 Year
  Sex: Male
  Weight: 104 kg

DRUGS (1)
  1. IVEMEND [Suspect]
     Indication: PROPHYLAXIS OF NAUSEA AND VOMITING
     Route: 042
     Dates: start: 20110826, end: 20110826

REACTIONS (7)
  - DIZZINESS [None]
  - HYPERSENSITIVITY [None]
  - OCULAR HYPERAEMIA [None]
  - DYSPNOEA [None]
  - FLUSHING [None]
  - OXYGEN SATURATION DECREASED [None]
  - OVERDOSE [None]
